FAERS Safety Report 24096392 (Version 1)
Quarter: 2024Q3

REPORT INFORMATION
  Report Type: Report from Study
  Country: US (occurrence: None)
  Receive Date: 20240716
  Receipt Date: 20240716
  Transmission Date: 20241016
  Serious: Yes (Other)
  Sender: ASTRAZENECA
  Company Number: 2021A860953

PATIENT
  Sex: Female

DRUGS (1)
  1. LYNPARZA [Suspect]
     Active Substance: OLAPARIB
     Indication: Ovarian cancer
     Route: 048
     Dates: start: 202104

REACTIONS (5)
  - Cardiac failure [Recovering/Resolving]
  - Swelling [Recovering/Resolving]
  - Fluid retention [Recovering/Resolving]
  - Product dose omission in error [Unknown]
  - Off label use [Unknown]
